FAERS Safety Report 12821712 (Version 1)
Quarter: 2016Q4

REPORT INFORMATION
  Report Type: Spontaneous
  Country: PT (occurrence: PT)
  Receive Date: 20161007
  Receipt Date: 20161007
  Transmission Date: 20170207
  Serious: Yes (Other)
  Sender: FDA-Public Use
  Company Number: PT-ROCHE-1835559

PATIENT
  Age: 37 Year
  Sex: Female
  Weight: 64 kg

DRUGS (8)
  1. PACLITAXEL. [Suspect]
     Active Substance: PACLITAXEL
     Indication: INFLAMMATORY CARCINOMA OF THE BREAST
     Route: 042
  2. TRASTUZUMAB [Suspect]
     Active Substance: TRASTUZUMAB
     Indication: INFLAMMATORY CARCINOMA OF THE BREAST
     Dosage: FOLLOWED BY 6 MG/KG EV
     Route: 042
  3. TAMOXIFEN [Suspect]
     Active Substance: TAMOXIFEN
     Indication: INFLAMMATORY CARCINOMA OF THE BREAST
     Route: 065
  4. LAPATINIB [Concomitant]
     Active Substance: LAPATINIB
  5. CAPECITABINE. [Concomitant]
     Active Substance: CAPECITABINE
     Route: 065
  6. ZOLEDRONIC ACID [Suspect]
     Active Substance: ZOLEDRONIC ACID
     Indication: INFLAMMATORY CARCINOMA OF THE BREAST
     Route: 042
  7. PERTUZUMAB [Suspect]
     Active Substance: PERTUZUMAB
     Indication: INFLAMMATORY CARCINOMA OF THE BREAST
     Dosage: FOLLOWED BY 420 MG EV
     Route: 042
  8. TRASTUZUMAB EMTANSINE [Suspect]
     Active Substance: ADO-TRASTUZUMAB EMTANSINE
     Indication: INFLAMMATORY CARCINOMA OF THE BREAST
     Route: 065

REACTIONS (9)
  - Diarrhoea [Unknown]
  - Disease progression [Unknown]
  - Neuropathy peripheral [Unknown]
  - Asthenia [Unknown]
  - Off label use [Unknown]
  - Arthralgia [Unknown]
  - Drug ineffective [Unknown]
  - Alopecia [Unknown]
  - Radiation skin injury [Unknown]

NARRATIVE: CASE EVENT DATE: 2014
